FAERS Safety Report 15345162 (Version 1)
Quarter: 2018Q3

REPORT INFORMATION
  Report Type: Spontaneous
  Country: FR (occurrence: FR)
  Receive Date: 20180903
  Receipt Date: 20180903
  Transmission Date: 20181010
  Serious: Yes (Death)
  Sender: FDA-Public Use
  Company Number: PHHY2018FR088482

PATIENT
  Age: 47 Year
  Sex: Female

DRUGS (2)
  1. TIAPRIDE [Suspect]
     Active Substance: TIAPRIDE
     Indication: COMPLETED SUICIDE
     Dosage: 100 MG, UNK (20 CP DE 100 MG)
     Route: 048
  2. CLOMIPRAMINE [Suspect]
     Active Substance: CLOMIPRAMINE
     Indication: COMPLETED SUICIDE
     Dosage: 75 MG, UNK (110 CP DE 75 MG)
     Route: 048

REACTIONS (2)
  - Intentional overdose [Fatal]
  - Death [Fatal]

NARRATIVE: CASE EVENT DATE: 20180814
